FAERS Safety Report 4309667-X (Version None)
Quarter: 2004Q1

REPORT INFORMATION
  Report Type: 
  Country: None (occurrence: None)
  Receive Date: 20040301
  Receipt Date: 20021216
  Transmission Date: 20041129
  Serious: Yes (Hospitalization, Other)
  Sender: FDA-Public Use
  Company Number: KII-2002-0007411

PATIENT
  Age: 27 Year
  Sex: Female

DRUGS (3)
  1. MS CONTIN [Suspect]
     Indication: PAIN
     Dosage: ORAL
     Route: 048
  2. ACETAMINOPHEN [Suspect]
     Indication: PAIN
     Dosage: ORAL
     Route: 048
  3. ACETAMINOPHEN W/ CODEINE [Suspect]
     Indication: PAIN
     Dosage: ORAL
     Route: 048

REACTIONS (3)
  - ALANINE AMINOTRANSFERASE INCREASED [None]
  - MEDICATION ERROR [None]
  - OVERDOSE [None]
